FAERS Safety Report 11137663 (Version 3)
Quarter: 2015Q2

REPORT INFORMATION
  Report Type: Spontaneous
  Country: PT (occurrence: PT)
  Receive Date: 20150526
  Receipt Date: 20150604
  Transmission Date: 20150821
  Serious: Yes (Hospitalization, Disabling, Other)
  Sender: FDA-Public Use
  Company Number: PT-GILEAD-2015-0154672

PATIENT
  Age: 63 Year
  Sex: Female

DRUGS (3)
  1. HARVONI [Suspect]
     Active Substance: LEDIPASVIR\SOFOSBUVIR
     Indication: HEPATITIS C
     Dosage: 1 DF, UNK
     Route: 048
     Dates: start: 20150505, end: 20150518
  2. SEROQUEL [Concomitant]
     Active Substance: QUETIAPINE FUMARATE
  3. SERENAL                            /00036302/ [Concomitant]

REACTIONS (1)
  - Psychotic disorder [Recovered/Resolved]

NARRATIVE: CASE EVENT DATE: 20150518
